FAERS Safety Report 6812773-9 (Version None)
Quarter: 2010Q3

REPORT INFORMATION
  Report Type: 
  Country: None (occurrence: None)
  Receive Date: 20100701
  Receipt Date: 20100622
  Transmission Date: 20110219
  Serious: Yes (Hospitalization)
  Sender: FDA-Public Use
  Company Number: B0652901A

PATIENT
  Sex: Female

DRUGS (1)
  1. AUGMENTIN '125' [Suspect]
     Dosage: 875MG TWICE PER DAY
     Route: 048
     Dates: start: 20100421, end: 20100422

REACTIONS (8)
  - HAEMATURIA [None]
  - HYPERTENSION [None]
  - HYPERTHERMIA [None]
  - LEUKOCYTURIA [None]
  - PRODUCT QUALITY ISSUE [None]
  - PROTEINURIA [None]
  - TUBULOINTERSTITIAL NEPHRITIS [None]
  - VOMITING [None]
